FAERS Safety Report 4869336-4 (Version None)
Quarter: 2005Q4

REPORT INFORMATION
  Report Type: 
  Country: None (occurrence: None)
  Receive Date: 20051230
  Receipt Date: 20051128
  Transmission Date: 20060501
  Serious: Yes (Hospitalization)
  Sender: FDA-Public Use
  Company Number: PHBS2005JP17691

PATIENT
  Age: 54 Year
  Sex: Male

DRUGS (6)
  1. NORVASC [Suspect]
     Dosage: 5 MG/DAY
     Route: 048
     Dates: start: 20050905
  2. DIOVAN [Suspect]
     Dosage: 80 MG/DAY
     Route: 048
     Dates: start: 20050908, end: 20051018
  3. DIOVAN [Suspect]
     Dosage: 120 MG/DAY
     Route: 048
     Dates: start: 20051019
  4. LORCAM [Concomitant]
     Dosage: 3 DF/DAY
     Route: 048
     Dates: end: 20051026
  5. MYONAL [Concomitant]
     Dosage: 3 DF/DAY
     Route: 048
     Dates: end: 20051026
  6. MUCOSTA [Concomitant]
     Dosage: 3 DF/DAY
     Route: 048
     Dates: end: 20051026

REACTIONS (5)
  - BLOOD PRESSURE INADEQUATELY CONTROLLED [None]
  - DENTAL DISCOMFORT [None]
  - ECZEMA [None]
  - HEPATITIS ALCOHOLIC [None]
  - SKIN ODOUR ABNORMAL [None]
